FAERS Safety Report 7041901 (Version 2)
Quarter: 2018Q4

REPORT INFORMATION
  Report Type: Spontaneous
  Country: US (occurrence: US)
  Receive Date: 20090706
  Receipt Date: 20181120
  Transmission Date: 20190205
  Serious: Yes (Congenital Anomaly, Other)
  Sender: FDA-Public Use
  Company Number: US-ROCHE-640900

PATIENT
  Sex: Female
  Weight: 2.2 kg

DRUGS (8)
  1. LASIX [Suspect]
     Active Substance: FUROSEMIDE
     Indication: HYPERTENSION
     Route: 064
  2. ACYCLOVIR. [Concomitant]
     Active Substance: ACYCLOVIR
  3. CELLCEPT [Suspect]
     Active Substance: MYCOPHENOLATE MOFETIL\MYCOPHENOLATE MOFETIL HYDROCHLORIDE
     Indication: PROPHYLAXIS AGAINST TRANSPLANT REJECTION
     Route: 064
  4. PREDNISONE. [Suspect]
     Active Substance: PREDNISONE
     Indication: PROPHYLAXIS AGAINST TRANSPLANT REJECTION
     Route: 064
  5. TACROLIMUS. [Suspect]
     Active Substance: TACROLIMUS
     Indication: PROPHYLAXIS AGAINST TRANSPLANT REJECTION
     Dosage: DOSE: 3 MG IN MORNING, 2 MG IN EVENING
     Route: 064
  6. NORVASC [Suspect]
     Active Substance: AMLODIPINE BESYLATE
     Indication: HYPERTENSION
     Route: 064
  7. EPOGEN [Concomitant]
     Active Substance: ERYTHROPOIETIN
     Route: 065
  8. METOPROLOL. [Suspect]
     Active Substance: METOPROLOL
     Indication: HYPERTENSION
     Route: 064

REACTIONS (32)
  - Fryns syndrome [Unknown]
  - Subarachnoid haemorrhage [Unknown]
  - Pyelocaliectasis [Unknown]
  - Congenital nipple anomaly [Unknown]
  - Low set ears [Unknown]
  - Atrial septal defect [Unknown]
  - Velo-cardio-facial syndrome [Unknown]
  - Intraventricular haemorrhage neonatal [Unknown]
  - Congenital diaphragmatic hernia [Unknown]
  - Pterygium colli [Unknown]
  - Pulmonary hypertension [Unknown]
  - Cyanosis [Unknown]
  - Spina bifida [Unknown]
  - Congenital nail disorder [Unknown]
  - Retrognathia [Unknown]
  - Ureteric dilatation [Unknown]
  - Polyhydramnios [Unknown]
  - Premature baby [Unknown]
  - Pulmonary hypoplasia [Unknown]
  - Microtia [Unknown]
  - Tracheo-oesophageal fistula [Unknown]
  - Single umbilical artery [Unknown]
  - External auditory canal atresia [Unknown]
  - Iris hypopigmentation [Unknown]
  - Dysmorphism [Unknown]
  - Hypertelorism of orbit [Unknown]
  - Oedematous kidney [Unknown]
  - Bladder dilatation [Unknown]
  - Cleft palate [Unknown]
  - Oesophageal atresia [Unknown]
  - Congenital arterial malformation [Unknown]
  - Nose deformity [Unknown]
